FAERS Safety Report 18844690 (Version 1)
Quarter: 2021Q1

REPORT INFORMATION
  Report Type: Report from Study
  Country: US (occurrence: US)
  Receive Date: 20210203
  Receipt Date: 20210203
  Transmission Date: 20210419
  Serious: No
  Sender: FDA-Public Use
  Company Number: US-EXELIXIS-CABO-20031836

PATIENT
  Sex: Male

DRUGS (2)
  1. KEYTRUDA [Concomitant]
     Active Substance: PEMBROLIZUMAB
  2. CABOMETYX [Suspect]
     Active Substance: CABOZANTINIB S-MALATE
     Indication: PROSTATE CANCER
     Dosage: 40 MG
     Dates: start: 20200707, end: 20200803

REACTIONS (6)
  - Fatigue [Unknown]
  - Prostatic specific antigen increased [Unknown]
  - Vomiting [Unknown]
  - Off label use [Unknown]
  - Haemoglobin decreased [Unknown]
  - Diarrhoea [Unknown]
